FAERS Safety Report 20029797 (Version 2)
Quarter: 2022Q1

REPORT INFORMATION
  Report Type: Spontaneous
  Country: AU (occurrence: AU)
  Receive Date: 20211103
  Receipt Date: 20220104
  Transmission Date: 20220424
  Serious: Yes (Death, Hospitalization)
  Sender: FDA-Public Use
  Company Number: AU-BIOGEN-2021BI01063369

PATIENT
  Sex: Female

DRUGS (1)
  1. TYSABRI [Suspect]
     Active Substance: NATALIZUMAB
     Indication: Multiple sclerosis
     Route: 065
     Dates: end: 20110819

REACTIONS (3)
  - Pneumonia aspiration [Fatal]
  - General physical health deterioration [Unknown]
  - Delirium [Unknown]
